FAERS Safety Report 7034354-7 (Version None)
Quarter: 2010Q4

REPORT INFORMATION
  Report Type: 
  Country: None (occurrence: None)
  Receive Date: 20101008
  Receipt Date: 20101001
  Transmission Date: 20110411
  Serious: Yes (Hospitalization)
  Sender: FDA-Public Use
  Company Number: PHHO2010DE14965

PATIENT
  Sex: Female

DRUGS (2)
  1. CGS 20267 T30748+TAB [Suspect]
     Indication: BREAST CANCER
     Dosage: 2.5 MG, QD
     Route: 048
     Dates: start: 20070401
  2. NOVALGIN [Concomitant]

REACTIONS (4)
  - BACK PAIN [None]
  - CERVICAL MYELOPATHY [None]
  - CERVICAL SPINAL STENOSIS [None]
  - DIPLEGIA [None]
